FAERS Safety Report 25452059 (Version 2)
Quarter: 2025Q2

REPORT INFORMATION
  Report Type: Spontaneous
  Country: PT (occurrence: PT)
  Receive Date: 20250618
  Receipt Date: 20250620
  Transmission Date: 20250716
  Serious: Yes (Hospitalization, Other)
  Sender: JOHNSON AND JOHNSON
  Company Number: PT-ZENTIVA-2025-ZT-039393

PATIENT
  Age: 81 Year
  Sex: Female

DRUGS (10)
  1. RISPERIDONE [Suspect]
     Active Substance: RISPERIDONE
     Indication: Product used for unknown indication
  2. RISPERIDONE [Suspect]
     Active Substance: RISPERIDONE
  3. RISPERIDONE [Suspect]
     Active Substance: RISPERIDONE
  4. RISPERIDONE [Suspect]
     Active Substance: RISPERIDONE
  5. RISPERIDONE [Suspect]
     Active Substance: RISPERIDONE
  6. RISPERIDONE [Suspect]
     Active Substance: RISPERIDONE
  7. OLANZAPINE [Suspect]
     Active Substance: OLANZAPINE
     Indication: Product used for unknown indication
  8. FLUOXETINE [Suspect]
     Active Substance: FLUOXETINE HYDROCHLORIDE
     Indication: Product used for unknown indication
  9. BROTIZOLAM [Suspect]
     Active Substance: BROTIZOLAM
     Indication: Product used for unknown indication
  10. CLORAZEPATE DIPOTASSIUM [Suspect]
     Active Substance: CLORAZEPATE DIPOTASSIUM
     Indication: Product used for unknown indication

REACTIONS (7)
  - Renal tubular acidosis [Unknown]
  - Dyspnoea [Unknown]
  - Fatigue [Unknown]
  - Respiratory acidosis [Unknown]
  - Hypoxia [Unknown]
  - Hyperkalaemia [Unknown]
  - Neutrophilia [Unknown]
